FAERS Safety Report 10016598 (Version 4)
Quarter: 2014Q2

REPORT INFORMATION
  Report Type: Report from Study
  Country: NL (occurrence: NL)
  Receive Date: 20140317
  Receipt Date: 20140421
  Transmission Date: 20141212
  Serious: Yes (Hospitalization)
  Sender: FDA-Public Use
  Company Number: NL-ONYX-2014-0155

PATIENT
  Age: 59 Year
  Sex: Female

DRUGS (6)
  1. CARFILZOMIB [Suspect]
     Indication: PLASMA CELL MYELOMA
     Route: 042
     Dates: start: 20131230, end: 20140119
  2. DEXAMETHASONE [Concomitant]
     Indication: PLASMA CELL MYELOMA
     Dates: start: 20131220
  3. THALIDOMIDE [Concomitant]
     Indication: PLASMA CELL MYELOMA
     Dates: start: 20131230
  4. VALACYCLOVIR [Concomitant]
     Indication: PROPHYLAXIS
     Route: 048
     Dates: start: 20131213
  5. FLUCONAZOL [Concomitant]
     Indication: PROPHYLAXIS
     Route: 048
     Dates: start: 20131213
  6. CIPROFLOXACIN [Concomitant]
     Indication: PROPHYLAXIS
     Route: 048
     Dates: start: 20131213

REACTIONS (1)
  - Drug reaction with eosinophilia and systemic symptoms [Recovered/Resolved]
